FAERS Safety Report 10916755 (Version 2)
Quarter: 2015Q2

REPORT INFORMATION
  Report Type: Spontaneous
  Country: JP (occurrence: None)
  Receive Date: 20150311
  Receipt Date: 20150619
  Transmission Date: 20150821
  Serious: Yes (Hospitalization, Other)
  Sender: FDA-Public Use
  Company Number: ABR_01959_2015

PATIENT
  Age: 37 Year
  Sex: Female

DRUGS (9)
  1. LANSOPRAZOLE. [Concomitant]
     Active Substance: LANSOPRAZOLE
  2. TOPINA [Concomitant]
     Active Substance: TOPIRAMATE
  3. MEROPENEM. [Concomitant]
     Active Substance: MEROPENEM
  4. GLIADEL [Suspect]
     Active Substance: CARMUSTINE
     Indication: GLIOBLASTOMA MULTIFORME
     Dosage: 4 DF 1X INTRACEREBRAL
     Dates: start: 20141217, end: 20150218
  5. SELENICA-R [Concomitant]
     Active Substance: SELENIUM
  6. RINDERON V [Concomitant]
     Active Substance: BETAMETHASONE VALERATE
  7. CEFAZOLIN SODIUM. [Concomitant]
     Active Substance: CEFAZOLIN SODIUM
  8. FOSPHENYTOIN SODIUM. [Concomitant]
     Active Substance: FOSPHENYTOIN SODIUM
  9. HISICEOL [Concomitant]

REACTIONS (9)
  - Wound secretion [None]
  - Incision site complication [None]
  - Scar [None]
  - Immunodeficiency [None]
  - Brain oedema [None]
  - Monoplegia [None]
  - Brain abscess [None]
  - Bacterial test positive [None]
  - Activities of daily living impaired [None]

NARRATIVE: CASE EVENT DATE: 20150115
